FAERS Safety Report 19725142 (Version 2)
Quarter: 2021Q3

REPORT INFORMATION
  Report Type: Report from Study
  Country: None (occurrence: CO)
  Receive Date: 20210819
  Receipt Date: 20210917
  Transmission Date: 20211014
  Serious: Yes (Other)
  Sender: FDA-Public Use
  Company Number: CO-ABBVIE-21K-036-4045416-00

PATIENT
  Age: 41 Year
  Sex: Female
  Weight: 61 kg

DRUGS (2)
  1. HUMIRA [Suspect]
     Active Substance: ADALIMUMAB
     Indication: CROHN^S DISEASE
     Route: 058
     Dates: start: 20200511, end: 20210827
  2. HUMIRA [Suspect]
     Active Substance: ADALIMUMAB
     Indication: ARTHRITIS

REACTIONS (6)
  - Inguinal hernia [Recovering/Resolving]
  - Anal spasm [Recovering/Resolving]
  - Anorectal disorder [Recovering/Resolving]
  - Pain [Recovering/Resolving]
  - Gastrointestinal pain [Recovering/Resolving]
  - Intestinal polyp [Recovering/Resolving]

NARRATIVE: CASE EVENT DATE: 2021
